FAERS Safety Report 10598714 (Version 3)
Quarter: 2015Q1

REPORT INFORMATION
  Report Type: Spontaneous
  Country: US (occurrence: US)
  Receive Date: 20141121
  Receipt Date: 20150220
  Transmission Date: 20150720
  Serious: Yes (Hospitalization, Other)
  Sender: FDA-Public Use
  Company Number: US-PFIZER INC-2014318550

PATIENT
  Age: 63 Year
  Sex: Female

DRUGS (2)
  1. SUTENT [Suspect]
     Active Substance: SUNITINIB MALATE
     Dosage: 25 MG, CYCLIC
     Dates: start: 20141230, end: 20150123
  2. SUTENT [Suspect]
     Active Substance: SUNITINIB MALATE
     Dosage: 50 MG, UNK
     Dates: start: 20140918, end: 20141015

REACTIONS (11)
  - Thrombosis [Unknown]
  - Diarrhoea [Unknown]
  - Malaise [Unknown]
  - Platelet count decreased [Unknown]
  - Yellow skin [Unknown]
  - Blood bilirubin increased [Unknown]
  - Haemorrhage [Unknown]
  - Rash generalised [Unknown]
  - Stomatitis [Unknown]
  - Blister [Unknown]
  - Ocular icterus [Unknown]

NARRATIVE: CASE EVENT DATE: 2014
